FAERS Safety Report 6221448-9 (Version None)
Quarter: 2009Q2

REPORT INFORMATION
  Report Type: 
  Country: None (occurrence: None)
  Receive Date: 20090610
  Receipt Date: 20090528
  Transmission Date: 20091009
  Serious: Yes (Other)
  Sender: FDA-Public Use
  Company Number: US-ELI_LILLY_AND_COMPANY-US200905005696

PATIENT
  Sex: Male

DRUGS (8)
  1. BYETTA [Suspect]
     Indication: TYPE 2 DIABETES MELLITUS
     Dosage: 20 UG, 5/W
     Route: 058
     Dates: start: 20080101, end: 20090501
  2. SYNTHROID [Concomitant]
     Indication: HYPOTHYROIDISM
     Dosage: 0.25 UG, DAILY (1/D)
  3. ZOLOFT [Concomitant]
     Dosage: 50 MG, DAILY (1/D)
  4. ALLEGRA [Concomitant]
     Dosage: 180 MG, UNK
  5. SINGULAIR [Concomitant]
  6. LIPITOR [Concomitant]
     Indication: HYPERLIPIDAEMIA
     Dosage: 20 MG, UNK
  7. LISINOPRIL [Concomitant]
     Indication: HYPERTENSION
     Dosage: 20 MG, UNK
  8. JANUVIA [Concomitant]
     Indication: DIABETES MELLITUS
     Dates: start: 20090526

REACTIONS (4)
  - ABDOMINAL PAIN [None]
  - DRUG DOSE OMISSION [None]
  - NAUSEA [None]
  - PANCREATITIS [None]
